FAERS Safety Report 9385876 (Version 2)
Quarter: 2013Q3

REPORT INFORMATION
  Report Type: Spontaneous
  Country: IT (occurrence: IT)
  Receive Date: 20130705
  Receipt Date: 20130731
  Transmission Date: 20140515
  Serious: Yes (Other)
  Sender: FDA-Public Use
  Company Number: IT-009507513-1307ITA001979

PATIENT
  Age: 87 Year
  Sex: Female

DRUGS (4)
  1. ALENDRONATE SODIUM [Suspect]
     Indication: OSTEOPOROSIS
     Dosage: 70 MG WEEKLY
     Route: 048
     Dates: start: 2005, end: 2005
  2. OPTINATE [Suspect]
     Indication: OSTEOPOROSIS
     Dosage: 35 MG WEEKLY
     Route: 048
     Dates: start: 2005, end: 200506
  3. ACLASTA [Suspect]
     Indication: OSTEOPOROSIS
     Dosage: INFUSION SOLUTION 5 MG/100 ML MONTHLY
     Route: 042
     Dates: start: 201206, end: 201212
  4. DIBASE [Concomitant]
     Indication: VITAMIN D DEFICIENCY
     Dosage: DROPS
     Route: 048
     Dates: start: 20120601, end: 20121201

REACTIONS (1)
  - Osteonecrosis [Unknown]
